FAERS Safety Report 10111160 (Version 3)
Quarter: 2014Q4

REPORT INFORMATION
  Report Type: Spontaneous
  Country: US (occurrence: None)
  Receive Date: 20140421
  Receipt Date: 20141020
  Transmission Date: 20150528
  Serious: No
  Sender: FDA-Public Use
  Company Number: AEGR000251

PATIENT
  Age: 59 Year
  Sex: Male
  Weight: 92.1 kg

DRUGS (12)
  1. JUXTAPID [Suspect]
     Active Substance: LOMITAPIDE MESYLATE
     Indication: TYPE IIA HYPERLIPIDAEMIA
     Route: 048
     Dates: start: 201310, end: 201401
  2. COLESTIPOL (COLESTIPOL) [Suspect]
     Active Substance: COLESTIPOL
     Indication: PRODUCT USED FOR UNKNOWN INDICATION
  3. ALVESCO (CICLESONIDE) [Concomitant]
  4. CRESTOR [Concomitant]
     Active Substance: ROSUVASTATIN CALCIUM
  5. METOPROLOL (METOPROLOL TARTRATE) [Concomitant]
     Active Substance: METOPROLOL TARTRATE
  6. VITAMIN E (TOCOPHERYL ACID SUCCINATE) [Concomitant]
  7. ASPIRIN (ACETYLSALICYLIC ACID) [Concomitant]
     Active Substance: ASPIRIN
  8. OMEGA 3 6 9 (OMEGA 9 FATTY ACIDS, OMEGA-3 FATTY ACIDS, OMEGA-6 FATTY ACIDS) [Concomitant]
  9. LEXAPRO [Concomitant]
     Active Substance: ESCITALOPRAM OXALATE
  10. VITAMIN D (COLECALCIFEROL) [Concomitant]
  11. TOPROL XL [Concomitant]
     Active Substance: METOPROLOL SUCCINATE
  12. SYMBICORT [Concomitant]
     Active Substance: BUDESONIDE\FORMOTEROL FUMARATE DIHYDRATE

REACTIONS (15)
  - Musculoskeletal pain [None]
  - Nausea [None]
  - Heart rate increased [None]
  - Erythema [None]
  - Abdominal distension [None]
  - Dyspnoea [None]
  - Pruritus [None]
  - Urticaria [None]
  - Chest discomfort [None]
  - Muscle spasms [None]
  - Weight decreased [None]
  - Diarrhoea [None]
  - Initial insomnia [None]
  - Muscular weakness [None]
  - Abdominal pain upper [None]

NARRATIVE: CASE EVENT DATE: 2013
